FAERS Safety Report 6429262-6 (Version None)
Quarter: 2009Q4

REPORT INFORMATION
  Report Type: 
  Country: None (occurrence: None)
  Receive Date: 20091105
  Receipt Date: 20091027
  Transmission Date: 20100525
  Serious: Yes (Other)
  Sender: FDA-Public Use
  Company Number: PHEH2009US14604

PATIENT
  Sex: Female

DRUGS (5)
  1. EXELON [Suspect]
     Indication: DEMENTIA
     Dosage: 4.6 MG. UNK
     Route: 062
     Dates: start: 20091001, end: 20091027
  2. ZOLOFT [Concomitant]
     Dosage: UNK, UNK
     Route: 065
  3. ANTIBIOTICS [Concomitant]
     Dosage: UNK, UNK
     Route: 065
  4. VITAMIN D [Concomitant]
  5. VITAMIN B COMPLEX CAP [Concomitant]

REACTIONS (1)
  - UNRESPONSIVE TO STIMULI [None]
